FAERS Safety Report 23911076 (Version 1)
Quarter: 2024Q2

REPORT INFORMATION
  Report Type: Spontaneous
  Country: US (occurrence: None)
  Receive Date: 20240527
  Receipt Date: 20240527
  Transmission Date: 20240715
  Serious: Yes (Hospitalization)
  Sender: FDA-Public Use
  Company Number: None

PATIENT
  Age: 53 Year
  Sex: Female
  Weight: 70.2 kg

DRUGS (1)
  1. PAZOPANIB [Suspect]
     Active Substance: PAZOPANIB
     Dates: end: 20240509

REACTIONS (3)
  - Dehydration [None]
  - Device occlusion [None]
  - Nephrostomy [None]

NARRATIVE: CASE EVENT DATE: 20240510
